FAERS Safety Report 8791179 (Version 1)
Quarter: 2012Q4

REPORT INFORMATION
  Report Type: Spontaneous
  Country: US (occurrence: None)
  Receive Date: 20120912
  Receipt Date: 20120912
  Transmission Date: 20130627
  Serious: Yes (Hospitalization)
  Sender: FDA-Public Use
  Company Number: ZYD-12-AE-194

PATIENT
  Age: 60 Year
  Sex: Male
  Weight: 79.8 kg

DRUGS (21)
  1. WARFARIN [Suspect]
     Indication: PULMONARY EMBOLISM
     Dosage: 3-3.5mg, qd, oral
     Route: 048
     Dates: start: 20120710, end: 20120807
  2. FARLETUZUMAB [Suspect]
     Indication: OVARIAN CANCER
     Dosage: double blind (1-2)-iv
     Route: 042
     Dates: start: 20111026
  3. CARBOPLATIN [Concomitant]
  4. PACLITAXEL [Concomitant]
  5. CHLORPHENIRAMINE [Concomitant]
  6. METOPROLOL TARTRATE [Concomitant]
  7. INDAPAMIDE [Concomitant]
  8. BROMHEXINE [Concomitant]
  9. TRIACT [Concomitant]
  10. ANUSOL [Concomitant]
  11. PROCHLORPERAZINE [Concomitant]
  12. PHOLCODINE LINCTUS [Concomitant]
  13. PARACETAMOL [Concomitant]
  14. SENNA [Concomitant]
  15. DIMETHYLPOLYSILOXANE [Concomitant]
  16. PYRIDOXINE [Concomitant]
  17. CROTAMITON [Concomitant]
  18. HEPARINOID [Concomitant]
  19. MAXOLON [Concomitant]
  20. TOPOTECAN [Concomitant]
  21. ENOXAPARIN [Concomitant]

REACTIONS (8)
  - Ascites [None]
  - International normalised ratio increased [None]
  - Decreased appetite [None]
  - Anaemia [None]
  - Blood potassium decreased [None]
  - Condition aggravated [None]
  - Ovarian cancer [None]
  - Malignant neoplasm progression [None]
